FAERS Safety Report 7945744-X (Version None)
Quarter: 2011Q4

REPORT INFORMATION
  Report Type: 
  Country: None (occurrence: None)
  Receive Date: 20111129
  Receipt Date: 20111122
  Transmission Date: 20120403
  Serious: Yes (Hospitalization, Disabling, Other)
  Sender: FDA-Public Use
  Company Number: US-B.I. PHARMACEUTICALS,INC./RIDGEFIELD-2011-BP-26594PF

PATIENT
  Sex: Male
  Weight: 90.7 kg

DRUGS (9)
  1. LIPITOR [Suspect]
     Indication: BLOOD CHOLESTEROL INCREASED
     Dosage: 20 MG
     Route: 048
     Dates: start: 20000101
  2. LYRICA [Suspect]
     Indication: BACK INJURY
     Dosage: 450 MG
     Route: 048
     Dates: start: 20060101
  3. NEXIUM [Concomitant]
     Dates: start: 20060101
  4. SPIRIVA [Suspect]
  5. HYDROCODONE [Suspect]
     Indication: PAIN
     Route: 065
     Dates: start: 20060101
  6. LIPITOR [Suspect]
     Dosage: 80 MG
     Route: 048
     Dates: start: 20060101
  7. LYRICA [Suspect]
     Indication: NECK INJURY
  8. LYRICA [Suspect]
     Indication: PAIN
  9. AMLODIPINE BESYLATE [Concomitant]
     Indication: HYPERTENSION
     Dosage: 10 MG

REACTIONS (7)
  - SURGERY [None]
  - PNEUMONIA [None]
  - ACCIDENT [None]
  - BACK INJURY [None]
  - NECK INJURY [None]
  - PAIN [None]
  - BLOOD CHOLESTEROL INCREASED [None]
